FAERS Safety Report 8891347 (Version 1)
Quarter: 2012Q4

REPORT INFORMATION
  Report Type: Spontaneous
  Country: US (occurrence: None)
  Receive Date: 20121102
  Receipt Date: 20121102
  Transmission Date: 20130627
  Serious: Yes (Other)
  Sender: FDA-Public Use
  Company Number: None

PATIENT
  Sex: Female
  Weight: 23.2 kg

DRUGS (1)
  1. AMPHETAMINE [Suspect]
     Dosage: Amphetamine/Dextroamphetamine 25mgXR QD Oral
     Route: 048
     Dates: start: 20121024, end: 20121031

REACTIONS (3)
  - Abnormal behaviour [None]
  - Product substitution issue [None]
  - Anger [None]
